FAERS Safety Report 24679389 (Version 2)
Quarter: 2024Q4

REPORT INFORMATION
  Report Type: Spontaneous
  Country: NP (occurrence: NP)
  Receive Date: 20241129
  Receipt Date: 20241205
  Transmission Date: 20250115
  Serious: Yes (Life-Threatening, Hospitalization, Other)
  Sender: ACCORD
  Company Number: NP-Accord-457283

PATIENT
  Age: 21 Year
  Sex: Male

DRUGS (1)
  1. AMLODIPINE [Suspect]
     Active Substance: AMLODIPINE BESYLATE
     Dosage: 43 DF, FOUR HOURS OF INGESTION OF 43 TABLETS OF AMLODIPINE 10 MG (A TOTAL OF 430 MG)
     Route: 048

REACTIONS (9)
  - Respiratory failure [Recovered/Resolved]
  - Loss of consciousness [Recovered/Resolved]
  - Hypotension [Recovered/Resolved]
  - Intentional overdose [Unknown]
  - Non-cardiogenic pulmonary oedema [Recovered/Resolved]
  - Tachycardia [Recovered/Resolved]
  - Respiratory distress [Recovering/Resolving]
  - Toxicity to various agents [Unknown]
  - Oliguria [Recovering/Resolving]
